FAERS Safety Report 19332958 (Version 2)
Quarter: 2021Q2

REPORT INFORMATION
  Report Type: Spontaneous
  Country: US (occurrence: US)
  Receive Date: 20210529
  Receipt Date: 20210603
  Transmission Date: 20210717
  Serious: Yes (Life-Threatening, Hospitalization, Other)
  Sender: FDA-Public Use
  Company Number: NVSC2021US120509

PATIENT
  Age: 21 Year
  Sex: Male
  Weight: 66 kg

DRUGS (3)
  1. CYCLOPHOSPHAMIDE. [Suspect]
     Active Substance: CYCLOPHOSPHAMIDE
     Indication: RHABDOMYOSARCOMA
     Dosage: 480 MG, QD (DAYS 1?5 OF 21 DAY CYCLE)
     Route: 041
     Dates: start: 20210405, end: 20210430
  2. PALBOCICLIB [Suspect]
     Active Substance: PALBOCICLIB
     Indication: RHABDOMYOSARCOMA
     Dosage: 125 MG, QD (DAY1?14 OF 21 DAY CYCLE)
     Route: 048
     Dates: start: 20210405, end: 20210503
  3. TOPOTECAN [Suspect]
     Active Substance: TOPOTECAN HYDROCHLORIDE
     Indication: RHABDOMYOSARCOMA
     Dosage: 1.4 MG, QD (DAYS 1?5 OF 21 DAY CYCLE)
     Route: 041
     Dates: start: 20210405, end: 20210430

REACTIONS (6)
  - Pneumonia [Not Recovered/Not Resolved]
  - Malignant neoplasm progression [Unknown]
  - Pleural effusion [Not Recovered/Not Resolved]
  - Metastases to lung [Unknown]
  - Malignant pleural effusion [Unknown]
  - Product use in unapproved indication [Unknown]

NARRATIVE: CASE EVENT DATE: 20210524
